FAERS Safety Report 12760762 (Version 1)
Quarter: 2016Q3

REPORT INFORMATION
  Report Type: Spontaneous
  Country: US (occurrence: US)
  Receive Date: 20160919
  Receipt Date: 20160919
  Transmission Date: 20161109
  Serious: No
  Sender: FDA-Public Use
  Company Number: US-GALDERMA-US16004453

PATIENT
  Age: 68 Year
  Sex: Female

DRUGS (13)
  1. UNKNOWN SUNSCREEN SPF 50 [Concomitant]
     Indication: PRODUCT USED FOR UNKNOWN INDICATION
     Route: 061
  2. MIRVASO [Suspect]
     Active Substance: BRIMONIDINE TARTRATE
     Indication: RAYNAUD^S PHENOMENON
     Dosage: 0.33%
     Route: 061
     Dates: start: 201605
  3. NEUTROGENA SPF 55 SUNSCREEN [Concomitant]
     Indication: PROPHYLAXIS AGAINST SOLAR RADIATION
     Route: 061
  4. MIRVASO [Suspect]
     Active Substance: BRIMONIDINE TARTRATE
     Indication: ERYTHEMA
     Dosage: 0.33%
     Route: 061
     Dates: start: 2015, end: 201605
  5. MULTIVITAMIN [Concomitant]
     Active Substance: VITAMINS
     Route: 048
  6. VITAMIN B6 [Concomitant]
     Active Substance: PYRIDOXINE HYDROCHLORIDE
     Route: 048
  7. AREDS 2 EYE VITAMINS [Concomitant]
     Route: 048
  8. BIOTIN [Concomitant]
     Active Substance: BIOTIN
     Route: 048
  9. VITAMIN C [Concomitant]
     Active Substance: ASCORBIC ACID
     Route: 048
  10. VITAMIN B12 [Concomitant]
     Active Substance: CYANOCOBALAMIN
     Route: 048
  11. CALCIUM [Concomitant]
     Active Substance: CALCIUM
     Route: 048
  12. FLAXSEED [Concomitant]
     Active Substance: FLAX SEED
     Route: 048
  13. BABY ASPIRIN [Concomitant]
     Active Substance: ASPIRIN
     Dosage: 81 MG
     Route: 048

REACTIONS (3)
  - Drug ineffective for unapproved indication [Not Recovered/Not Resolved]
  - Condition aggravated [Not Recovered/Not Resolved]
  - Product use issue [Not Recovered/Not Resolved]

NARRATIVE: CASE EVENT DATE: 201605
